FAERS Safety Report 10242434 (Version 3)
Quarter: 2014Q3

REPORT INFORMATION
  Report Type: Spontaneous
  Country: JP (occurrence: JP)
  Receive Date: 20140617
  Receipt Date: 20140721
  Transmission Date: 20150326
  Serious: Yes (Life-Threatening, Hospitalization, Disabling)
  Sender: FDA-Public Use
  Company Number: PHJP2014JP000858

PATIENT
  Age: 49 Year
  Sex: Male
  Weight: 65 kg

DRUGS (3)
  1. PARIET [Suspect]
     Active Substance: RABEPRAZOLE SODIUM
     Indication: DUODENITIS
     Dosage: 10 MG, QD
     Route: 048
     Dates: start: 20111227, end: 20120111
  2. STEROID [Concomitant]
     Active Substance: UNSPECIFIED INGREDIENT
  3. TEGRETOL [Suspect]
     Active Substance: CARBAMAZEPINE
     Indication: EPILEPSY
     Dosage: 200 MG, QD
     Route: 048
     Dates: start: 201109, end: 20120111

REACTIONS (11)
  - Drug reaction with eosinophilia and systemic symptoms [Recovered/Resolved]
  - Nasopharyngitis [Unknown]
  - Abdominal pain [Unknown]
  - Decreased appetite [Unknown]
  - Oral pain [Unknown]
  - Rash [Unknown]
  - Nausea [Unknown]
  - Duodenitis [Recovered/Resolved]
  - Diabetic ketoacidosis [Recovered/Resolved]
  - Rash generalised [Recovering/Resolving]
  - Fulminant type 1 diabetes mellitus [Recovered/Resolved]

NARRATIVE: CASE EVENT DATE: 20111227
